FAERS Safety Report 7065132-0 (Version None)
Quarter: 2010Q4

REPORT INFORMATION
  Report Type: 
  Country: None (occurrence: None)
  Receive Date: 20101027
  Receipt Date: 20101022
  Transmission Date: 20110411
  Serious: Yes (Hospitalization)
  Sender: FDA-Public Use
  Company Number: GB-AMGEN-KDC410130

PATIENT

DRUGS (12)
  1. NEULASTA [Suspect]
     Indication: CHEMOTHERAPY
     Dosage: 6 MG, Q3WK
     Route: 058
     Dates: start: 20100304
  2. RITUXIMAB [Suspect]
     Dosage: 670 MG, Q3WK
     Route: 042
     Dates: start: 20100304
  3. CYCLOPHOSPHAMIDE [Suspect]
     Dosage: 1350 MG, Q3WK
     Route: 042
     Dates: start: 20100304
  4. GEMCITABINE [Suspect]
     Dosage: 1300 MG, Q3WK
     Route: 042
     Dates: start: 20100304
  5. VINCRISTINE [Suspect]
     Dosage: 2 MG, Q3WK
     Route: 042
     Dates: start: 20100304
  6. PREDNISONE [Suspect]
     Dosage: 100 MG, Q3WK
     Route: 048
     Dates: start: 20100304
  7. OMEPRAZOLE [Concomitant]
     Dosage: UNK
  8. CANDESARTAN CILEXETIL [Concomitant]
  9. SIMVASTATIN [Concomitant]
  10. VERAPAMIL [Concomitant]
     Dosage: UNK
  11. PHENINDAMINE [Concomitant]
     Dosage: UNK
  12. HYDROFLUMETHIAZIDE [Concomitant]
     Dosage: UNK

REACTIONS (2)
  - ANAEMIA [None]
  - NEUTROPENIA [None]
